FAERS Safety Report 8504414-X (Version None)
Quarter: 2012Q3

REPORT INFORMATION
  Report Type: 
  Country: None (occurrence: None)
  Receive Date: 20120711
  Receipt Date: 20120710
  Transmission Date: 20120928
  Serious: No
  Sender: FDA-Public Use
  Company Number: US-PFIZER INC-2011202442

PATIENT
  Sex: Female
  Weight: 97.052 kg

DRUGS (11)
  1. LASIX [Concomitant]
     Dosage: UNK
  2. BENADRYL [Concomitant]
     Dosage: UNK, 12.5 W
  3. ALOXI [Concomitant]
     Dosage: UNK, 0.25 W
  4. TORISEL [Suspect]
     Indication: RENAL CANCER METASTATIC
     Dosage: 25 MG, WEEKLY
     Route: 042
     Dates: start: 20110214
  5. ATGAM [Concomitant]
     Dosage: UNK
  6. DEXTROSE [Concomitant]
     Dosage: UNK, 5 W
  7. SPIRIVA [Concomitant]
     Dosage: UNK
  8. ADVAIR DISKUS 100/50 [Concomitant]
     Dosage: UNK
  9. SYMBICORT [Concomitant]
     Dosage: UNK
  10. POTASSIUM [Concomitant]
     Dosage: UNK
  11. FAMOTIDINE [Concomitant]
     Dosage: UNK

REACTIONS (2)
  - SWELLING [None]
  - EXTRAVASATION [None]
